FAERS Safety Report 9395644 (Version 7)
Quarter: 2014Q2

REPORT INFORMATION
  Report Type: Spontaneous
  Country: GB (occurrence: GB)
  Receive Date: 20130711
  Receipt Date: 20140603
  Transmission Date: 20141212
  Serious: Yes (Life-Threatening, Hospitalization, Other)
  Sender: FDA-Public Use
  Company Number: GB-TEVA-417129ISR

PATIENT
  Age: 41 Year
  Sex: Male

DRUGS (9)
  1. VINCRISTINE [Suspect]
     Indication: BURKITT^S LYMPHOMA
     Dates: start: 20130610
  2. DOXORUBICIN NOS [Suspect]
     Indication: BURKITT^S LYMPHOMA
     Dates: start: 20130610
  3. METHOTREXATE [Suspect]
     Indication: BURKITT^S LYMPHOMA
     Dates: start: 201306
  4. ZAPONEX [Suspect]
     Route: 048
     Dates: start: 20100618
  5. CYCLOPHOSPHAMIDE [Suspect]
     Indication: BURKITT^S LYMPHOMA
     Dates: start: 20130610
  6. MABTHERA [Suspect]
     Indication: BURKITT^S LYMPHOMA
     Dosage: 700 MILLIGRAM DAILY;
     Route: 048
     Dates: start: 20130610
  7. GRANISETRON [Concomitant]
     Indication: BURKITT^S LYMPHOMA
     Route: 048
     Dates: start: 20130611
  8. SODIUM BICARBONATE [Concomitant]
     Indication: BURKITT^S LYMPHOMA
     Dates: start: 201306
  9. FILGRASTIM [Concomitant]
     Dates: start: 20130623

REACTIONS (12)
  - Burkitt^s lymphoma [Not Recovered/Not Resolved]
  - Agranulocytosis [Recovered/Resolved]
  - Thrombocytopenia [Recovered/Resolved]
  - Neutrophil count decreased [Recovered/Resolved]
  - Neutropenia [Recovered/Resolved]
  - Leukopenia [Recovered/Resolved]
  - White blood cell count decreased [Recovered/Resolved]
  - Platelet count decreased [Recovered/Resolved]
  - Neutrophil count increased [Recovered/Resolved]
  - White blood cell count increased [Recovered/Resolved]
  - Off label use [Not Recovered/Not Resolved]
  - Eosinophil count increased [Recovered/Resolved]
